FAERS Safety Report 15738331 (Version 1)
Quarter: 2018Q4

REPORT INFORMATION
  Report Type: Spontaneous
  Country: US (occurrence: US)
  Receive Date: 20181219
  Receipt Date: 20181219
  Transmission Date: 20190205
  Serious: No
  Sender: FDA-Public Use
  Company Number: US-GLENMARK PHARMACEUTICALS-2018GMK037991

PATIENT

DRUGS (2)
  1. ONDANSETRON TABLETS USP [Suspect]
     Active Substance: ONDANSETRON
     Dosage: DOSE INCREMENTED TO TWO (2) TABLETS OF 4 MG (8 MG)
     Route: 065
     Dates: start: 20181019, end: 20181021
  2. ONDANSETRON TABLETS USP [Suspect]
     Active Substance: ONDANSETRON
     Indication: PROPHYLAXIS OF NAUSEA AND VOMITING
     Dosage: 4 MG, QID (EVERY 6 HOURS)
     Route: 065
     Dates: start: 20181012, end: 20181018

REACTIONS (2)
  - Rash generalised [Not Recovered/Not Resolved]
  - Hypersensitivity [Unknown]

NARRATIVE: CASE EVENT DATE: 20181021
